FAERS Safety Report 21205009 (Version 1)
Quarter: 2022Q3

REPORT INFORMATION
  Report Type: Report from Study
  Country: None (occurrence: US)
  Receive Date: 20220812
  Receipt Date: 20220812
  Transmission Date: 20221027
  Serious: Yes (Other)
  Sender: FDA-Public Use
  Company Number: US-AKCEA THERAPEUTICS, INC.-2022IS003866

PATIENT
  Age: 37 Year
  Sex: Female

DRUGS (2)
  1. TEGSEDI [Suspect]
     Active Substance: INOTERSEN SODIUM
     Indication: Hereditary neuropathic amyloidosis
     Route: 058
     Dates: start: 20190903
  2. DEVICE [Suspect]
     Active Substance: DEVICE

REACTIONS (2)
  - Dehydration [Unknown]
  - Illness [Unknown]

NARRATIVE: CASE EVENT DATE: 20220717
